FAERS Safety Report 6230056-5 (Version None)
Quarter: 2009Q2

REPORT INFORMATION
  Report Type: 
  Country: None (occurrence: None)
  Receive Date: 20090615
  Receipt Date: 20090603
  Transmission Date: 20091009
  Serious: Yes (Hospitalization, Other)
  Sender: FDA-Public Use
  Company Number: CH-WYE-G03732009

PATIENT
  Age: 81 Year
  Sex: Female

DRUGS (26)
  1. EFFEXOR [Interacting]
     Indication: DEPRESSION
     Dosage: UP TITRATION TO 225MG PER DAY
     Route: 048
     Dates: start: 20081101, end: 20090324
  2. EFFEXOR [Interacting]
     Route: 048
     Dates: start: 20090325, end: 20090328
  3. EFFEXOR [Interacting]
     Route: 048
     Dates: start: 20090329, end: 20090331
  4. EFFEXOR [Interacting]
     Route: 048
     Dates: start: 20090401, end: 20090407
  5. EFFEXOR [Interacting]
     Dosage: UP-TITRATION TO 75 MG PER DAY
     Dates: start: 20090501
  6. NOZINAN [Interacting]
     Route: 048
     Dates: start: 20080101, end: 20090324
  7. SERESTA [Interacting]
     Route: 048
     Dates: start: 20080101, end: 20090328
  8. SERESTA [Interacting]
     Route: 048
     Dates: start: 20090329, end: 20090407
  9. SERESTA [Interacting]
     Route: 048
     Dates: start: 20090408, end: 20090414
  10. SERESTA [Interacting]
     Dosage: UNKNOWN
     Dates: start: 20090101, end: 20090101
  11. TRAMADOL HCL [Interacting]
     Indication: PAIN
     Dosage: UP TITRATION TO 200MG PER DAY
     Route: 048
     Dates: start: 20090101, end: 20090319
  12. TRAMADOL HCL [Interacting]
     Route: 048
     Dates: start: 20090320, end: 20090416
  13. RISPERDAL [Interacting]
     Dosage: UNKNOWN
     Dates: start: 20090301, end: 20090101
  14. ASPIRIN [Concomitant]
     Route: 048
  15. NEXIUM [Concomitant]
     Route: 048
     Dates: end: 20090101
  16. METFORMIN HYDROCHLORIDE [Concomitant]
     Route: 048
  17. HUMALOG [Concomitant]
     Dosage: UNKNOWN
  18. FUROSEMIDE [Suspect]
     Dosage: 80MG REDUCED TO 20 MG PER DAY
     Dates: start: 20090324, end: 20090329
  19. FUROSEMIDE [Suspect]
     Route: 048
     Dates: start: 20090330
  20. MST [Interacting]
     Route: 048
     Dates: start: 20090101, end: 20090325
  21. MST [Interacting]
     Route: 048
     Dates: start: 20090326, end: 20090331
  22. MST [Interacting]
     Route: 048
     Dates: start: 20090401, end: 20090408
  23. MST [Interacting]
     Route: 048
     Dates: start: 20090409, end: 20090412
  24. DALMADORM [Interacting]
     Route: 048
     Dates: start: 20080101, end: 20090330
  25. DALMADORM [Interacting]
     Route: 048
     Dates: start: 20090331
  26. DALMADORM [Interacting]
     Dosage: UNKNOWN
     Dates: start: 20090101, end: 20090101

REACTIONS (17)
  - AFFECT LABILITY [None]
  - AGGRESSION [None]
  - AGITATION [None]
  - CARDIAC HYPERTROPHY [None]
  - DEHYDRATION [None]
  - DELIRIUM [None]
  - DISORIENTATION [None]
  - DRUG INEFFECTIVE [None]
  - DRUG INTERACTION [None]
  - DRUG LEVEL INCREASED [None]
  - PAIN [None]
  - PERSECUTORY DELUSION [None]
  - PNEUMONIA [None]
  - PSYCHOMOTOR HYPERACTIVITY [None]
  - RESTLESSNESS [None]
  - SEDATION [None]
  - SLEEP DISORDER [None]
